FAERS Safety Report 8208213-8 (Version None)
Quarter: 2012Q1

REPORT INFORMATION
  Report Type: 
  Country: None (occurrence: None)
  Receive Date: 20120314
  Receipt Date: 20120309
  Transmission Date: 20120608
  Serious: Yes (Hospitalization)
  Sender: FDA-Public Use
  Company Number: PHHY2012KR004105

PATIENT
  Sex: Male

DRUGS (1)
  1. EXJADE [Suspect]
     Indication: IRON OVERLOAD
     Route: 048
     Dates: start: 20090114

REACTIONS (4)
  - SKIN EXFOLIATION [None]
  - SERUM FERRITIN ABNORMAL [None]
  - DIARRHOEA [None]
  - PYREXIA [None]
